FAERS Safety Report 12119922 (Version 4)
Quarter: 2016Q2

REPORT INFORMATION
  Report Type: Report from Study
  Country: US (occurrence: US)
  Receive Date: 20160226
  Receipt Date: 20160526
  Transmission Date: 20160815
  Serious: Yes (Death, Life-Threatening, Hospitalization, Disabling)
  Sender: FDA-Public Use
  Company Number: US-ACTELION-A-US2015-129298

PATIENT
  Age: 49 Year
  Sex: Female

DRUGS (3)
  1. VELETRI [Suspect]
     Active Substance: EPOPROSTENOL
     Dosage: 10 NG/KG, PER MIN
     Route: 042
  2. VELETRI [Suspect]
     Active Substance: EPOPROSTENOL
     Indication: PULMONARY ARTERIAL HYPERTENSION
     Dosage: 8 NG/KG, PER MIN
     Route: 042
     Dates: start: 20151215, end: 20160403
  3. VELETRI [Suspect]
     Active Substance: EPOPROSTENOL
     Dosage: 13 NG/KG, PER MIN
     Route: 042

REACTIONS (16)
  - Disease progression [Fatal]
  - Asthenia [Unknown]
  - Drug dose omission [Unknown]
  - Complication associated with device [Unknown]
  - Catheter placement [Unknown]
  - Diarrhoea [Recovered/Resolved]
  - Pain in jaw [Unknown]
  - Pulmonary arterial hypertension [Fatal]
  - Catheter management [Unknown]
  - Fluid retention [Unknown]
  - Sepsis [Fatal]
  - Vomiting [Unknown]
  - Headache [Unknown]
  - Multiple organ dysfunction syndrome [Fatal]
  - Nausea [Unknown]
  - Dyspnoea [Unknown]
